FAERS Safety Report 8052004-8 (Version None)
Quarter: 2012Q1

REPORT INFORMATION
  Report Type: 
  Country: None (occurrence: None)
  Receive Date: 20120118
  Receipt Date: 20120110
  Transmission Date: 20120608
  Serious: Yes (Hospitalization)
  Sender: FDA-Public Use
  Company Number: AU-JNJFOC-20111105368

PATIENT
  Sex: Female

DRUGS (4)
  1. SIMPONI [Suspect]
     Route: 058
     Dates: start: 20111223
  2. SIMPONI [Suspect]
     Indication: RHEUMATOID ARTHRITIS
     Route: 058
     Dates: start: 20111104
  3. SIMPONI [Suspect]
     Route: 058
     Dates: start: 20111223
  4. SIMPONI [Suspect]
     Indication: ANKYLOSING SPONDYLITIS
     Route: 058
     Dates: start: 20111104

REACTIONS (11)
  - RASH [None]
  - VOMITING [None]
  - FATIGUE [None]
  - ARTHRALGIA [None]
  - HEADACHE [None]
  - ASTHENIA [None]
  - INCREASED APPETITE [None]
  - MALAISE [None]
  - DIZZINESS [None]
  - NAUSEA [None]
  - PYREXIA [None]
